FAERS Safety Report 8650004 (Version 2)
Quarter: 2012Q4

REPORT INFORMATION
  Report Type: Spontaneous
  Country: NO (occurrence: None)
  Receive Date: 20120621
  Receipt Date: 20120821
  Transmission Date: 20130627
  Serious: Yes (Hospitalization, Disabling, Other)
  Sender: FDA-Public Use
  Company Number: AUR-APL-2012-02673

PATIENT
  Age: 51 Year
  Sex: Male

DRUGS (8)
  1. SIMVASTATIN [Suspect]
     Indication: PRODUCT USED FOR UNKNOWN INDICATION
     Dates: start: 201106
  2. REMICADE [Suspect]
     Indication: ANKYLOSING SPONDYLITIS
     Dosage: (1 IN 6 WK), INTRAVENOUS
     Route: 042
     Dates: start: 2008
  3. PENTASA [Concomitant]
  4. LOPERAMID (LOPERAMIDE HYDROCHLORIDE) [Concomitant]
  5. PARALGIN FORTE (PARALGIN FORTE /00221201/) [Concomitant]
  6. METOPROLOL TARTRATE [Concomitant]
  7. ATACAND (BLOPRESS PLUS) [Concomitant]
  8. PARACET (PARACETAMOL) [Concomitant]

REACTIONS (11)
  - DILATATION VENTRICULAR [None]
  - AORTIC VALVE INCOMPETENCE [None]
  - SUBILEUS [None]
  - INTESTINAL ANASTOMOSIS COMPLICATION [None]
  - CARDIAC FAILURE [None]
  - CHEST X-RAY ABNORMAL [None]
  - LEFT VENTRICULAR DYSFUNCTION [None]
  - ATRIAL FIBRILLATION [None]
  - CORONARY ARTERY STENOSIS [None]
  - AORTIC DILATATION [None]
  - INTESTINAL STENOSIS [None]
